FAERS Safety Report 6190544-7 (Version None)
Quarter: 2009Q2

REPORT INFORMATION
  Report Type: 
  Country: None (occurrence: None)
  Receive Date: 20090514
  Receipt Date: 20090507
  Transmission Date: 20091009
  Serious: Yes (Other)
  Sender: FDA-Public Use
  Company Number: US-PFIZER INC-2009185995

PATIENT
  Sex: Male

DRUGS (1)
  1. CAVERJECT [Suspect]

REACTIONS (4)
  - AMPUTATION [None]
  - DRUG INEFFECTIVE [None]
  - INFECTION [None]
  - PEYRONIE'S DISEASE [None]
